FAERS Safety Report 6895675-1 (Version None)
Quarter: 2010Q3

REPORT INFORMATION
  Report Type: 
  Country: None (occurrence: None)
  Receive Date: 20100730
  Receipt Date: 20100730
  Transmission Date: 20110219
  Serious: Yes (Hospitalization)
  Sender: FDA-Public Use
  Company Number: None

PATIENT
  Age: 75 Year
  Sex: Female

DRUGS (1)
  1. BACTRIM DS [Suspect]
     Indication: URINARY TRACT INFECTION
     Dosage: 1 BID PO
     Route: 048

REACTIONS (8)
  - DIARRHOEA [None]
  - NAUSEA [None]
  - PAIN [None]
  - PRURITUS [None]
  - RASH [None]
  - SNEEZING [None]
  - SWELLING [None]
  - VOMITING [None]
